FAERS Safety Report 8376989-5 (Version None)
Quarter: 2012Q2

REPORT INFORMATION
  Report Type: 
  Country: None (occurrence: None)
  Receive Date: 20120522
  Receipt Date: 20120516
  Transmission Date: 20120825
  Serious: Yes (Hospitalization)
  Sender: FDA-Public Use
  Company Number: CA-ROCHE-1033925

PATIENT
  Sex: Female
  Weight: 63.56 kg

DRUGS (26)
  1. MABTHERA [Suspect]
     Indication: VASCULITIS
     Dosage: DAY 1 AND 15
     Route: 042
     Dates: start: 20100209
  2. ACETAMINOFEN [Concomitant]
     Indication: PREMEDICATION
     Dosage: ONCE
     Dates: start: 20111004, end: 20111004
  3. CHLORIDE [Concomitant]
  4. B12 COMPLEX [Concomitant]
  5. FOLIC ACID [Concomitant]
  6. MULTI-VITAMINS [Concomitant]
  7. MAGNESIUM [Concomitant]
  8. PREDNISONE [Concomitant]
     Indication: PREMEDICATION
     Route: 048
     Dates: start: 20111004, end: 20111004
  9. POTASSIUM CHLORIDE [Concomitant]
  10. ALENDRONATE SODIUM [Concomitant]
  11. MABTHERA [Suspect]
     Indication: SJOGREN'S SYNDROME
     Dosage: DAY 1 AND 15
     Route: 042
     Dates: start: 20110929
  12. ACIDOPHILUS [Concomitant]
  13. NORTRIPTYLINE HCL [Concomitant]
  14. LORAZEPAM [Concomitant]
  15. LOVAZA [Concomitant]
  16. HYDROMORPHONE HCL [Concomitant]
  17. MELATONIN [Concomitant]
  18. LYRICA [Concomitant]
  19. LASIX [Concomitant]
  20. NASONEX [Concomitant]
  21. ASCORBIC ACID [Concomitant]
  22. RANITIDINE [Concomitant]
  23. DIPHENHYDRAMINE HCL [Concomitant]
     Indication: PREMEDICATION
     Dosage: ONCE
     Route: 048
     Dates: start: 20111004, end: 20111004
  24. SULFATRIM [Concomitant]
  25. BACLOFEN [Concomitant]
  26. CALCIUM [Concomitant]

REACTIONS (3)
  - PNEUMONIA ASPIRATION [None]
  - HIP ARTHROPLASTY [None]
  - PNEUMONIA [None]
